FAERS Safety Report 8557055-2 (Version None)
Quarter: 2012Q3

REPORT INFORMATION
  Report Type: 
  Country: None (occurrence: None)
  Receive Date: 20120801
  Receipt Date: 20120720
  Transmission Date: 20120928
  Serious: Yes (Hospitalization)
  Sender: FDA-Public Use
  Company Number: FR-ROCHE-1091159

PATIENT
  Sex: Male

DRUGS (13)
  1. DEXAMETHASONE [Concomitant]
  2. CYTARABINE [Concomitant]
  3. MABTHERA [Suspect]
     Dates: start: 20120702
  4. KETOPROFEN [Suspect]
     Indication: SCIATICA
     Route: 048
     Dates: start: 20120628, end: 20120702
  5. ASPIRIN [Suspect]
     Indication: PRODUCT USED FOR UNKNOWN INDICATION
     Route: 048
  6. REPAGLINIDE [Suspect]
     Indication: TYPE 2 DIABETES MELLITUS
     Route: 048
  7. MABTHERA [Suspect]
     Indication: B-CELL LYMPHOMA
     Route: 042
     Dates: start: 20120302
  8. RAMIPRIL [Suspect]
     Indication: HYPERTENSION
     Route: 048
     Dates: start: 20120628, end: 20120702
  9. RIBAVIRIN [Concomitant]
     Dates: start: 20090101, end: 20100101
  10. OXALIPLATIN [Concomitant]
  11. PRAVASTATIN [Suspect]
     Indication: DYSLIPIDAEMIA
     Route: 048
  12. TRAMADOL HYDROCHLORIDE [Concomitant]
  13. ACETAMINOPHEN W/ CODEINE [Suspect]
     Indication: PAIN
     Route: 048
     Dates: start: 20120628, end: 20120702

REACTIONS (1)
  - HEPATITIS ACUTE [None]
